FAERS Safety Report 21578434 (Version 7)
Quarter: 2023Q2

REPORT INFORMATION
  Report Type: Report from Study
  Country: US (occurrence: US)
  Receive Date: 20221110
  Receipt Date: 20230417
  Transmission Date: 20230722
  Serious: Yes (Other)
  Sender: FDA-Public Use
  Company Number: US-ABBVIE-4159746

PATIENT
  Age: 45 Year
  Sex: Female

DRUGS (7)
  1. RINVOQ [Suspect]
     Active Substance: UPADACITINIB
     Indication: Product used for unknown indication
     Route: 048
  2. RINVOQ [Suspect]
     Active Substance: UPADACITINIB
     Indication: Product used for unknown indication
  3. Pfizer/BioNTech [Concomitant]
     Indication: COVID-19 immunisation
     Dosage: 1 IN 1 ONCE
     Route: 030
  4. Pfizer/BioNTech [Concomitant]
     Indication: COVID-19 immunisation
     Dosage: 1 IN 1 ONCE (3RD DOSE)
     Route: 030
     Dates: start: 202201, end: 202201
  5. VITAMIN B12 [Suspect]
     Active Substance: CYANOCOBALAMIN
     Indication: Product used for unknown indication
     Route: 065
  6. DUPIXENT [Concomitant]
     Active Substance: DUPILUMAB
     Indication: Product used for unknown indication
  7. BENADRYL [Concomitant]
     Active Substance: DIPHENHYDRAMINE HYDROCHLORIDE
     Indication: Product used for unknown indication

REACTIONS (20)
  - Carpal tunnel syndrome [Recovering/Resolving]
  - Sinusitis [Recovering/Resolving]
  - Swollen tongue [Unknown]
  - Acne [Unknown]
  - Fatigue [Unknown]
  - Pruritus [Recovering/Resolving]
  - Rash macular [Recovering/Resolving]
  - Neuropathy peripheral [Unknown]
  - Neuropathy vitamin B12 deficiency [Unknown]
  - Anaphylactic reaction [Unknown]
  - Respiratory tract infection [Unknown]
  - Pruritus [Unknown]
  - Rash [Not Recovered/Not Resolved]
  - Drug hypersensitivity [Unknown]
  - Rash erythematous [Unknown]
  - Hypersensitivity [Recovering/Resolving]
  - Allergy to metals [Unknown]
  - Paraesthesia [Unknown]
  - Condition aggravated [Recovering/Resolving]
  - Dermatitis allergic [Unknown]

NARRATIVE: CASE EVENT DATE: 20221201
